FAERS Safety Report 7831589-8 (Version None)
Quarter: 2011Q4

REPORT INFORMATION
  Report Type: 
  Country: None (occurrence: None)
  Receive Date: 20111021
  Receipt Date: 20111017
  Transmission Date: 20120403
  Serious: Yes (Hospitalization, Other)
  Sender: FDA-Public Use
  Company Number: DE-AMGEN-DEUSP2011047165

PATIENT
  Sex: Female

DRUGS (2)
  1. NEULASTA [Suspect]
     Indication: CHEMOTHERAPY
     Dosage: 6 MG, UNK
     Route: 058
     Dates: start: 20110811, end: 20110811
  2. ONDANSETRON [Concomitant]
     Indication: VOMITING
     Dosage: 4 MG, UNK
     Route: 048
     Dates: start: 20110810, end: 20111012

REACTIONS (6)
  - CARDIOVASCULAR DISORDER [None]
  - DYSPNOEA [None]
  - HYPERSENSITIVITY [None]
  - ERYTHEMA [None]
  - ASTHMA [None]
  - DERMATITIS ALLERGIC [None]
